FAERS Safety Report 8123431-5 (Version None)
Quarter: 2012Q1

REPORT INFORMATION
  Report Type: 
  Country: None (occurrence: None)
  Receive Date: 20120208
  Receipt Date: 20120201
  Transmission Date: 20120608
  Serious: Yes (Other)
  Sender: FDA-Public Use
  Company Number: US-ASTRAZENECA-2012SE07156

PATIENT
  Age: 24 Year
  Sex: Female

DRUGS (1)
  1. SEROQUEL XR [Suspect]
     Indication: DEPRESSION
     Route: 048

REACTIONS (4)
  - ROAD TRAFFIC ACCIDENT [None]
  - MUSCLE TIGHTNESS [None]
  - ACTIVITIES OF DAILY LIVING IMPAIRED [None]
  - MUSCLE SPASMS [None]
